FAERS Safety Report 5960105-0 (Version None)
Quarter: 2008Q4

REPORT INFORMATION
  Report Type: 
  Country: None (occurrence: None)
  Receive Date: 20081118
  Receipt Date: 20081118
  Transmission Date: 20090506
  Serious: Yes (Other)
  Sender: FDA-Public Use
  Company Number: None

PATIENT
  Age: 40 Year
  Sex: Male
  Weight: 83.9154 kg

DRUGS (1)
  1. PRO-AIR HFA 90 MCG ALBUTEROL PRO-AIR [Suspect]
     Indication: ASTHMA
     Dosage: 2 INHALATIONS 4 HR PO
     Route: 048
     Dates: start: 20081001, end: 20081114

REACTIONS (3)
  - DRUG INEFFECTIVE [None]
  - DYSPNOEA [None]
  - PRODUCT QUALITY ISSUE [None]
